FAERS Safety Report 12495400 (Version 1)
Quarter: 2016Q2

REPORT INFORMATION
  Report Type: Spontaneous
  Country: US (occurrence: None)
  Receive Date: 20160623
  Receipt Date: 20160623
  Transmission Date: 20160815
  Serious: Yes (Other)
  Sender: FDA-Public Use
  Company Number: None

PATIENT
  Age: 34 Year
  Sex: Female
  Weight: 72.58 kg

DRUGS (1)
  1. MY WAY [Suspect]
     Active Substance: LEVONORGESTREL
     Indication: CONTRACEPTION
     Dosage: 1 TABLET(S) TAKEN BY MOUTH
     Route: 048
     Dates: start: 20160603, end: 20160603

REACTIONS (2)
  - Drug ineffective [None]
  - Pregnancy after post coital contraception [None]

NARRATIVE: CASE EVENT DATE: 20160603
